FAERS Safety Report 6877469-6 (Version None)
Quarter: 2010Q2

REPORT INFORMATION
  Report Type: 
  Country: None (occurrence: None)
  Receive Date: 20100616
  Receipt Date: 20100510
  Transmission Date: 20101027
  Serious: No
  Sender: FDA-Public Use
  Company Number: DSA_43132_2010

PATIENT
  Sex: Male

DRUGS (1)
  1. XENAZINE [Suspect]
     Indication: CHOREA
     Dosage: 12.5 MG QD ORAL
     Route: 048
     Dates: start: 20100505

REACTIONS (2)
  - ABNORMAL BEHAVIOUR [None]
  - INAPPROPRIATE AFFECT [None]
